FAERS Safety Report 9941929 (Version 2)
Quarter: 2014Q1

REPORT INFORMATION
  Report Type: Report from Study
  Country: US (occurrence: US)
  Receive Date: 20140303
  Receipt Date: 20140303
  Transmission Date: 20141002
  Serious: No
  Sender: FDA-Public Use
  Company Number: US-ABBVIE-13P-163-1031870-00

PATIENT
  Age: 64 Year
  Sex: Female

DRUGS (8)
  1. HUMIRA [Suspect]
     Indication: PSORIASIS
     Dosage: LOADING DOSE
     Route: 058
     Dates: start: 20130102, end: 20130102
  2. HUMIRA [Suspect]
     Route: 058
  3. ASPIRIN [Concomitant]
     Indication: PRODUCT USED FOR UNKNOWN INDICATION
  4. LISINOPRIL [Concomitant]
     Indication: HYPERTENSION
  5. CRESTOR [Concomitant]
     Indication: PRODUCT USED FOR UNKNOWN INDICATION
  6. GLYBURIDE [Concomitant]
     Indication: DIABETES MELLITUS
  7. METFORMIN [Concomitant]
     Indication: DIABETES MELLITUS
  8. ALEVE [Concomitant]
     Indication: ARTHRALGIA

REACTIONS (7)
  - Drug dose omission [Recovering/Resolving]
  - Injection site pain [Recovering/Resolving]
  - Injection site erosion [Recovering/Resolving]
  - Injection site pain [Recovered/Resolved]
  - Wrong technique in drug usage process [Unknown]
  - Incorrect dose administered [Unknown]
  - Pain in extremity [Unknown]
